FAERS Safety Report 13052083 (Version 2)
Quarter: 2017Q1

REPORT INFORMATION
  Report Type: Report from Study
  Country: JP (occurrence: JP)
  Receive Date: 20161221
  Receipt Date: 20170215
  Transmission Date: 20170428
  Serious: Yes (Hospitalization, Disabling, Other)
  Sender: FDA-Public Use
  Company Number: JP-INCYTE CORPORATION-2016IN008060

PATIENT
  Age: 71 Year
  Sex: Male

DRUGS (4)
  1. JAKAVI [Suspect]
     Active Substance: RUXOLITINIB
     Dosage: 5 MG, QD
     Route: 048
     Dates: start: 20161003, end: 20161114
  2. JAKAVI [Suspect]
     Active Substance: RUXOLITINIB
     Indication: POLYCYTHAEMIA VERA
     Dosage: 5 MG, QD
     Route: 048
     Dates: start: 20160912, end: 20160914
  3. JAKAVI [Suspect]
     Active Substance: RUXOLITINIB
     Dosage: 10 MG, QD
     Route: 048
     Dates: start: 20160915, end: 20161002
  4. WARFARIN [Concomitant]
     Active Substance: WARFARIN
     Indication: POLYCYTHAEMIA VERA
     Dosage: 1.5 MG, UNK
     Route: 048
     Dates: start: 20090529

REACTIONS (8)
  - Splenic infarction [Not Recovered/Not Resolved]
  - Malaise [Unknown]
  - Anaemia [Unknown]
  - Portal vein thrombosis [Not Recovered/Not Resolved]
  - Ascites [Unknown]
  - Drug effect incomplete [Unknown]
  - Concomitant disease aggravated [Not Recovered/Not Resolved]
  - Abdominal distension [Not Recovered/Not Resolved]

NARRATIVE: CASE EVENT DATE: 20160916
